FAERS Safety Report 6221962-6 (Version None)
Quarter: 2009Q2

REPORT INFORMATION
  Report Type: 
  Country: None (occurrence: None)
  Receive Date: 20090608
  Receipt Date: 20090608
  Transmission Date: 20091009
  Serious: Yes (Other)
  Sender: FDA-Public Use
  Company Number: None

PATIENT
  Age: 33 Year
  Sex: Female
  Weight: 86.1834 kg

DRUGS (1)
  1. COPAXONE [Suspect]
     Indication: RELAPSING-REMITTING MULTIPLE SCLEROSIS
     Dosage: STANDARD DOSE DAILY SQ
     Route: 058
     Dates: start: 20030530, end: 20090430

REACTIONS (14)
  - ANXIETY [None]
  - BLADDER SPASM [None]
  - BONE PAIN [None]
  - CHEST DISCOMFORT [None]
  - CHILLS [None]
  - DISTURBANCE IN ATTENTION [None]
  - DYSPNOEA [None]
  - GASTROINTESTINAL PAIN [None]
  - HYPOTHERMIA [None]
  - MUSCLE DISORDER [None]
  - MUSCLE SPASMS [None]
  - MYALGIA [None]
  - NEURALGIA [None]
  - VULVOVAGINAL PAIN [None]
